FAERS Safety Report 9412513 (Version 1)
Quarter: 2013Q3

REPORT INFORMATION
  Report Type: Spontaneous
  Country: None (occurrence: None)
  Receive Date: 20130715
  Receipt Date: 20130715
  Transmission Date: 20140515
  Serious: Yes (Hospitalization, Other)
  Sender: FDA-Public Use
  Company Number: 09-AUR-10440

PATIENT
  Age: 40 Year
  Sex: Female

DRUGS (8)
  1. PAROXETINE [Suspect]
     Indication: DEPRESSION
  2. FENTANYL [Suspect]
     Indication: GENERAL ANAESTHESIA
     Route: 042
  3. THIOPENTAL (THIOPENTAL) [Concomitant]
  4. VECURONIUM BROMIDE (VECURONIUM BROMIDE) [Concomitant]
  5. SEVOFLURANE IN NITROUS OXIDE AND OXYGEN (SEVOFLURANE) [Concomitant]
  6. NEOSTIGMINE (NEOSTIGMINE) [Concomitant]
  7. ATROPINE (ATROPINE) [Concomitant]
  8. DICLOFENAC (DICLOFENAC) [Concomitant]

REACTIONS (8)
  - Haemodynamic instability [None]
  - Blood pressure abnormal [None]
  - Somnolence [None]
  - Confusional state [None]
  - Coma scale abnormal [None]
  - Nystagmus [None]
  - Pupils unequal [None]
  - Pupillary reflex impaired [None]
